FAERS Safety Report 8959519 (Version 1)
Quarter: 2012Q4

REPORT INFORMATION
  Report Type: 
  Country: US (occurrence: US)
  Receive Date: 20121211
  Receipt Date: 20121211
  Transmission Date: 20130627
  Serious: Yes (Hospitalization, Other)
  Sender: FDA-Public Use
  Company Number: US-009507513-1111USA02470

PATIENT

DRUGS (5)
  1. FOSAMAX [Suspect]
     Indication: OSTEOPENIA
     Dosage: 10 mg, qd
     Route: 048
     Dates: start: 19961125, end: 2003
  2. FOSAMAX [Suspect]
     Dosage: 70 mg, QW
     Route: 048
     Dates: start: 2004, end: 201103
  3. FOSAMAX [Suspect]
     Dosage: 70 mg, QW
     Route: 048
     Dates: start: 20061206, end: 20080219
  4. ACTONEL [Suspect]
     Indication: OSTEOPENIA
     Dosage: 5 mg, qd
     Dates: start: 2003, end: 2004
  5. FOSAMAX [Suspect]
     Indication: OSTEOPENIA
     Dosage: 70 mg, QW
     Route: 048
     Dates: start: 20080220, end: 200810

REACTIONS (37)
  - Convulsion [Unknown]
  - Osteonecrosis of jaw [Unknown]
  - Tooth disorder [Not Recovered/Not Resolved]
  - Vasculitis [Unknown]
  - Intracranial aneurysm [Unknown]
  - Drug intolerance [Unknown]
  - Nephropathy toxic [Unknown]
  - Gastrooesophageal reflux disease [Unknown]
  - Dry mouth [Unknown]
  - Tooth fracture [Unknown]
  - Dental caries [Unknown]
  - Abdominal discomfort [Unknown]
  - Loss of consciousness [Unknown]
  - Dental plaque [Unknown]
  - Vascular headache [Unknown]
  - Dizziness [Unknown]
  - Cervical dysplasia [Not Recovered/Not Resolved]
  - Mouth haemorrhage [Unknown]
  - Stress fracture [Unknown]
  - Tooth fracture [Unknown]
  - Fatigue [Unknown]
  - Loss of consciousness [Unknown]
  - Tooth disorder [Unknown]
  - Tooth disorder [Unknown]
  - Uterine disorder [Unknown]
  - Cataract [Unknown]
  - Oesophagitis [Unknown]
  - Mouth ulceration [Unknown]
  - Adhesiolysis [Unknown]
  - Oesophageal dilation procedure [Unknown]
  - Oesophageal stenosis [Unknown]
  - Adhesion [Unknown]
  - Cystoscopy [Unknown]
  - Urinary tract infection [Unknown]
  - Polymyalgia rheumatica [Unknown]
  - Post thrombotic syndrome [Unknown]
  - Osteoporosis [Unknown]
